FAERS Safety Report 23188122 (Version 3)
Quarter: 2023Q4

REPORT INFORMATION
  Report Type: Spontaneous
  Country: US (occurrence: US)
  Receive Date: 20231115
  Receipt Date: 20231120
  Transmission Date: 20240110
  Serious: No
  Sender: FDA-Public Use
  Company Number: US-PFIZER INC-202300358062

PATIENT
  Age: 67 Year
  Sex: Female
  Weight: 79.38 kg

DRUGS (5)
  1. PAXLOVID [Suspect]
     Active Substance: NIRMATRELVIR\RITONAVIR
     Indication: COVID-19 treatment
     Dosage: NORMAL DOSE; 5 DAY COURSE
     Dates: start: 20231101, end: 20231105
  2. ALBUTEROL [Concomitant]
     Active Substance: ALBUTEROL
     Indication: Asthma
     Dosage: AS NEEDED
  3. UNITHROID [Concomitant]
     Active Substance: LEVOTHYROXINE SODIUM
     Indication: Thyroid disorder
     Dosage: 0.675 MG, DAILY
     Route: 048
  4. TERCONAZOLE [Concomitant]
     Active Substance: TERCONAZOLE
     Dosage: UNK, 1X/DAY (ONCE A DAY AT NIGHT FOR 7 DAYS)
  5. AUGMENTIN [Concomitant]
     Active Substance: AMOXICILLIN\CLAVULANATE POTASSIUM

REACTIONS (7)
  - Therapeutic response unexpected [Unknown]
  - Oxygen saturation increased [Unknown]
  - Dysgeusia [Recovered/Resolved]
  - Diarrhoea [Recovered/Resolved]
  - Decreased appetite [Unknown]
  - Protein total increased [Unknown]
  - Exercise tolerance increased [Unknown]

NARRATIVE: CASE EVENT DATE: 20231101
